FAERS Safety Report 8708378 (Version 2)
Quarter: 2014Q1

REPORT INFORMATION
  Report Type: Spontaneous
  Country: US (occurrence: US)
  Receive Date: 20120806
  Receipt Date: 20140113
  Transmission Date: 20141002
  Serious: No
  Sender: FDA-Public Use
  Company Number: US-PFIZER INC-2012185809

PATIENT
  Sex: Female

DRUGS (2)
  1. EFFEXOR XR [Suspect]
     Dosage: UNK
     Dates: end: 201401
  2. PRISTIQ [Suspect]
     Dosage: UNK

REACTIONS (3)
  - Insomnia [Unknown]
  - Headache [Unknown]
  - Feeling abnormal [Unknown]
